FAERS Safety Report 7027999-1 (Version None)
Quarter: 2010Q4

REPORT INFORMATION
  Report Type: 
  Country: None (occurrence: None)
  Receive Date: 20101005
  Receipt Date: 20100928
  Transmission Date: 20110411
  Serious: Yes (Hospitalization)
  Sender: FDA-Public Use
  Company Number: JP-ACTELION-A-CH2010-39574

PATIENT
  Sex: Female
  Weight: 41 kg

DRUGS (11)
  1. BOSENTAN TABLET 62.5 MG JPN [Suspect]
     Indication: PULMONARY ARTERIAL HYPERTENSION
     Dosage: 62.5 MG, BID
     Route: 048
     Dates: start: 20060127, end: 20060525
  2. BOSENTAN TABLET 62.5 MG JPN [Suspect]
     Dosage: 62.5 MG, QD
     Route: 048
     Dates: start: 20051228, end: 20060126
  3. BOSENTAN TABLET 62.5 MG JPN [Suspect]
     Dosage: 93.75 MG, BID
     Route: 048
     Dates: start: 20060526, end: 20060608
  4. BOSENTAN TABLET 62.5 MG JPN [Suspect]
     Dosage: 62.5 MG, BID
     Route: 048
     Dates: start: 20060609, end: 20060622
  5. BOSENTAN TABLET 62.5 MG JPN [Suspect]
     Dosage: 93.75 MG, BID
     Route: 048
     Dates: start: 20060623, end: 20060801
  6. BOSENTAN TABLET 62.5 MG JPN [Suspect]
     Dosage: 62.5 MG, BID
     Route: 048
     Dates: start: 20060802, end: 20070802
  7. BOSENTAN TABLET 62.5 MG JPN [Suspect]
     Dosage: 62.5 MG, QD
     Route: 048
     Dates: start: 20070818
  8. BERAPROST SODIUM [Concomitant]
  9. LEVOTHYROXINE SODIUM [Concomitant]
  10. SARPOGRELATE HYDROCHLORIDE [Concomitant]
  11. OXYGEN [Concomitant]

REACTIONS (3)
  - REBOUND EFFECT [None]
  - RIGHT VENTRICULAR SYSTOLIC PRESSURE INCREASED [None]
  - THROMBOCYTOPENIA [None]
